FAERS Safety Report 10756804 (Version 3)
Quarter: 2015Q3

REPORT INFORMATION
  Report Type: Spontaneous
  Country: TR (occurrence: TR)
  Receive Date: 20150203
  Receipt Date: 20150710
  Transmission Date: 20151125
  Serious: Yes (Hospitalization, Other)
  Sender: FDA-Public Use
  Company Number: TR-AMGEN-TURSP2014096105

PATIENT
  Age: 66 Year
  Sex: Female

DRUGS (6)
  1. ENBREL [Suspect]
     Active Substance: ETANERCEPT
     Indication: RHEUMATOID ARTHRITIS
     Dosage: 50 MG, WEEKLY
     Route: 058
     Dates: start: 201407, end: 20141010
  2. DAFLON                             /00426001/ [Concomitant]
     Active Substance: DIOSMIN
     Dosage: UNK
  3. FOLBIOL [Concomitant]
     Active Substance: FOLIC ACID
     Dosage: UNK
  4. PREDNOL                            /00049601/ [Concomitant]
     Active Substance: METHYLPREDNISOLONE
     Dosage: UNK
  5. ENBREL [Suspect]
     Active Substance: ETANERCEPT
     Dosage: 50 MG, WEEKLY
     Route: 058
     Dates: start: 20141026, end: 20150116
  6. ENBREL [Suspect]
     Active Substance: ETANERCEPT
     Dosage: 50 MG, WEEKLY
     Route: 058

REACTIONS (12)
  - Nausea [Not Recovered/Not Resolved]
  - Decreased appetite [Not Recovered/Not Resolved]
  - Nausea [Recovered/Resolved]
  - Heart valve stenosis [Not Recovered/Not Resolved]
  - Inflammation [Unknown]
  - Syncope [Recovered/Resolved]
  - Inflammatory marker increased [Recovered/Resolved]
  - Localised infection [Recovered/Resolved]
  - Peroneal nerve palsy [Recovering/Resolving]
  - Pain in extremity [Not Recovered/Not Resolved]
  - Peripheral swelling [Not Recovered/Not Resolved]
  - Hypotension [Recovered/Resolved]

NARRATIVE: CASE EVENT DATE: 201410
